FAERS Safety Report 10071344 (Version 3)
Quarter: 2014Q3

REPORT INFORMATION
  Report Type: Spontaneous
  Country: US (occurrence: US)
  Receive Date: 20140410
  Receipt Date: 20140929
  Transmission Date: 20150326
  Serious: No
  Sender: FDA-Public Use
  Company Number: US-009507513-1404USA002594

PATIENT
  Sex: Male
  Weight: 97.51 kg

DRUGS (1)
  1. PROPECIA [Suspect]
     Active Substance: FINASTERIDE
     Indication: ALOPECIA
     Dosage: 1 MG, QD
     Route: 048
     Dates: start: 20010810, end: 20120626

REACTIONS (15)
  - Hypertension [Unknown]
  - Umbilical hernia [Not Recovered/Not Resolved]
  - Ligament operation [Unknown]
  - Genital pain [Unknown]
  - Sleep apnoea syndrome [Unknown]
  - Glucose tolerance impaired [Unknown]
  - Erectile dysfunction [Not Recovered/Not Resolved]
  - Polycythaemia vera [Unknown]
  - Syncope [Recovered/Resolved]
  - Libido decreased [Unknown]
  - Drug ineffective [Unknown]
  - Dyslipidaemia [Unknown]
  - Sexual dysfunction [Not Recovered/Not Resolved]
  - Ejaculation disorder [Unknown]
  - Breast enlargement [Unknown]

NARRATIVE: CASE EVENT DATE: 2002
